FAERS Safety Report 19452899 (Version 1)
Quarter: 2021Q2

REPORT INFORMATION
  Report Type: Report from Study
  Country: PL (occurrence: PL)
  Receive Date: 20210623
  Receipt Date: 20210623
  Transmission Date: 20210717
  Serious: Yes (Hospitalization, Other)
  Sender: FDA-Public Use
  Company Number: NVSC2021PL130997

PATIENT

DRUGS (1)
  1. METFORMIN [Suspect]
     Active Substance: METFORMIN HYDROCHLORIDE
     Indication: PRODUCT USED FOR UNKNOWN INDICATION
     Dosage: UNK
     Route: 065

REACTIONS (13)
  - Hypoglycaemia [Unknown]
  - Cardiac disorder [Unknown]
  - Hypertension [Unknown]
  - Pollakiuria [Unknown]
  - Hyperglycaemia [Unknown]
  - Myocardial infarction [Unknown]
  - Coronary artery disease [Unknown]
  - Sleep apnoea syndrome [Unknown]
  - Arthralgia [Unknown]
  - Ulcer [Unknown]
  - Cardiovascular disorder [Unknown]
  - Angina pectoris [Unknown]
  - Obesity [Unknown]
